FAERS Safety Report 4688124-5 (Version None)
Quarter: 2005Q2

REPORT INFORMATION
  Report Type: 
  Country: None (occurrence: None)
  Receive Date: 20050609
  Receipt Date: 20050527
  Transmission Date: 20051028
  Serious: Yes (Other)
  Sender: FDA-Public Use
  Company Number: HQWYE131402JUN05

PATIENT
  Sex: 0

DRUGS (1)
  1. MYLOTARG [Suspect]
     Indication: ACUTE MYELOID LEUKAEMIA
     Dosage: 2 DOSES OF 9 MG/M^2, 2 WEEKS APART, INTRAVENOUS
     Route: 042

REACTIONS (1)
  - MYOCARDIAL INFARCTION [None]
